FAERS Safety Report 9166826 (Version 1)
Quarter: 2012Q4

REPORT INFORMATION
  Report Type: Report from Study
  Country: ES (occurrence: ES)
  Receive Date: 20121106
  Receipt Date: 20121106
  Transmission Date: 20130627
  Serious: Yes (Other)
  Sender: FDA-Public Use
  Company Number: ES-VERTEX PHARMACEUTICAL INC.-000000000000000298

PATIENT
  Age: 56 None
  Sex: Male
  Weight: 73 kg

DRUGS (3)
  1. VX-950 (TELAPREVIR) [Suspect]
     Indication: HEPATITIS C
     Dosage: Dosage Form: Tablet
     Route: 048
     Dates: start: 20111216, end: 20120219
  2. RIBAVIRIN [Suspect]
     Indication: HEPATITIS C
     Dosage: Dosage Form: Unspecified
     Route: 048
     Dates: start: 20111216, end: 20120222
  3. PEGINTERFERON ALFA-2A [Suspect]
     Indication: HEPATITIS C
     Dosage: Dosage Form: Unspecified
     Route: 065
     Dates: start: 20111216, end: 20120217

REACTIONS (2)
  - Rash [Recovered/Resolved]
  - Rash [Recovered/Resolved]
